FAERS Safety Report 21086538 (Version 1)
Quarter: 2022Q3

REPORT INFORMATION
  Report Type: Spontaneous
  Country: US (occurrence: US)
  Receive Date: 20220715
  Receipt Date: 20220715
  Transmission Date: 20221027
  Serious: No
  Sender: FDA-Public Use
  Company Number: US-SA-SAC20220714001425

PATIENT
  Sex: Female

DRUGS (2)
  1. THYROGEN [Suspect]
     Active Substance: THYROTROPIN ALFA
     Indication: Breast cancer
     Dosage: 0.9 MG, QD
     Route: 030
     Dates: start: 20200219, end: 20200220
  2. CAPECITABINE [Concomitant]
     Active Substance: CAPECITABINE
     Dosage: 2DOSE

REACTIONS (3)
  - Skin fissures [Unknown]
  - Skin discolouration [Unknown]
  - Skin haemorrhage [Unknown]
